FAERS Safety Report 6394621-7 (Version None)
Quarter: 2009Q4

REPORT INFORMATION
  Report Type: 
  Country: None (occurrence: None)
  Receive Date: 20091009
  Receipt Date: 20090929
  Transmission Date: 20100525
  Serious: Yes (Other)
  Sender: FDA-Public Use
  Company Number: EG-ROCHE-659156

PATIENT
  Age: 36 Year
  Sex: Male
  Weight: 112 kg

DRUGS (3)
  1. PEGASYS [Suspect]
     Route: 058
  2. COPEGUS [Suspect]
     Route: 048
  3. CONCOR [Concomitant]
     Indication: HYPERTENSION
     Route: 048
     Dates: start: 20040101

REACTIONS (1)
  - THROMBOPHLEBITIS SUPERFICIAL [None]
